FAERS Safety Report 20892620 (Version 2)
Quarter: 2022Q2

REPORT INFORMATION
  Report Type: Report from Study
  Country: ES (occurrence: ES)
  Receive Date: 20220531
  Receipt Date: 20220617
  Transmission Date: 20220721
  Serious: No
  Sender: FDA-Public Use
  Company Number: ES-NOVARTISPH-NVSC2022ES122479

PATIENT
  Age: 49 Year
  Sex: Female
  Weight: 75 kg

DRUGS (5)
  1. ALPELISIB [Suspect]
     Active Substance: ALPELISIB
     Indication: Breast cancer
     Dosage: 250 MG
     Route: 048
     Dates: start: 20211015
  2. FULVESTRANT [Suspect]
     Active Substance: FULVESTRANT
     Indication: Breast cancer
     Dosage: 500 MG
     Route: 030
     Dates: start: 20211008
  3. METFORMIN [Concomitant]
     Active Substance: METFORMIN HYDROCHLORIDE
     Indication: Prophylaxis
     Dosage: 1000 MG
     Route: 048
     Dates: start: 20211008
  4. METFORMIN [Concomitant]
     Active Substance: METFORMIN HYDROCHLORIDE
     Indication: Breast cancer
  5. DULAGLUTIDE [Concomitant]
     Active Substance: DULAGLUTIDE
     Indication: Hyperglycaemia
     Dosage: 0.75 MG/0.5 ML, ONCE WEEKLY
     Route: 062
     Dates: start: 20220124

REACTIONS (1)
  - Neutrophilic dermatosis [Not Recovered/Not Resolved]

NARRATIVE: CASE EVENT DATE: 20220225
